FAERS Safety Report 4319389-7 (Version None)
Quarter: 2004Q1

REPORT INFORMATION
  Report Type: 
  Country: None (occurrence: None)
  Receive Date: 20040316
  Receipt Date: 20040301
  Transmission Date: 20041129
  Serious: Yes (Other)
  Sender: FDA-Public Use
  Company Number: 2004-DE-01031ZA

PATIENT
  Age: 31 Year
  Sex: Female

DRUGS (6)
  1. VIRAMUNE [Suspect]
     Indication: HIV INFECTION
     Dosage: 400 MG (400 MG) PO
     Route: 048
     Dates: start: 19991115
  2. VIRAMUNE [Suspect]
     Indication: HIV INFECTION
     Dosage: 400 MG (400 MG) PO
     Route: 048
     Dates: start: 20000303
  3. 3TC (LAMIVUDINE) (TA) [Suspect]
     Indication: HIV INFECTION
     Dosage: 300 MG (300 MG) PO
     Route: 048
     Dates: start: 19991101
  4. 3TC (LAMIVUDINE) (TA) [Suspect]
     Indication: HIV INFECTION
     Dosage: 300 MG (300 MG) PO
     Route: 048
     Dates: start: 20000303
  5. ZERIT [Suspect]
     Indication: HIV INFECTION
     Dosage: 80 MG (80 MG)  PO
     Route: 048
     Dates: start: 19991101
  6. ZERIT [Suspect]
     Indication: HIV INFECTION
     Dosage: 80 MG (80 MG)  PO
     Route: 048
     Dates: start: 20000303

REACTIONS (4)
  - ABORTION INDUCED [None]
  - COMPLICATIONS OF MATERNAL EXPOSURE TO THERAPEUTIC DRUGS [None]
  - MATERNAL DRUGS AFFECTING FOETUS [None]
  - PREGNANCY [None]
